FAERS Safety Report 8168193-0 (Version None)
Quarter: 2012Q1

REPORT INFORMATION
  Report Type: 
  Country: None (occurrence: None)
  Receive Date: 20120222
  Receipt Date: 20120214
  Transmission Date: 20120608
  Serious: Yes (Other)
  Sender: FDA-Public Use
  Company Number: AUR-APL-2012-00836

PATIENT
  Age: 80 Year
  Sex: Male

DRUGS (4)
  1. LOSARTAN POTASSIUM [Suspect]
     Indication: PRODUCT USED FOR UNKNOWN INDICATION
     Dosage: (200 MG, 1 IN 1 D),
     Dates: start: 20111106, end: 20111106
  2. ATENOLOL [Suspect]
     Indication: PRODUCT USED FOR UNKNOWN INDICATION
     Dosage: (2 DOSAGE FORMS,TOTAL),ORAL
     Route: 048
     Dates: start: 20111106, end: 20111109
  3. ATENOLOL+CHLORTHALIDONE(ATENOLOL/CHLORTHALIDONE)(ATENOLOL, CHLORTALIDO [Suspect]
     Indication: PRODUCT USED FOR UNKNOWN INDICATION
     Dosage: (2 DOSAGE FORMS,TOTAL),ORAL
     Route: 048
     Dates: start: 20111106, end: 20111106
  4. PLAVIX [Concomitant]

REACTIONS (1)
  - HYPERTENSION [None]
